FAERS Safety Report 8582352-4 (Version None)
Quarter: 2012Q3

REPORT INFORMATION
  Report Type: 
  Country: None (occurrence: None)
  Receive Date: 20120809
  Receipt Date: 20120730
  Transmission Date: 20120928
  Serious: Yes (Hospitalization, Other)
  Sender: FDA-Public Use
  Company Number: FR-ROCHE-1049666

PATIENT
  Sex: Female

DRUGS (3)
  1. AVASTIN [Suspect]
     Indication: PRODUCT USED FOR UNKNOWN INDICATION
     Route: 065
     Dates: start: 20110826, end: 20120210
  2. AVASTIN [Suspect]
     Dates: start: 20111216, end: 20120127
  3. PACLITAXEL [Suspect]
     Indication: PRODUCT USED FOR UNKNOWN INDICATION
     Dosage: DATE OF LAST DOSE BEFORE EVENT 27JAN/2012
     Route: 065
     Dates: start: 20111216, end: 20120127

REACTIONS (2)
  - PLEURAL EFFUSION [None]
  - NEUROPATHY PERIPHERAL [None]
